FAERS Safety Report 24716460 (Version 1)
Quarter: 2024Q4

REPORT INFORMATION
  Report Type: Spontaneous
  Country: CN (occurrence: CN)
  Receive Date: 20241210
  Receipt Date: 20241210
  Transmission Date: 20250115
  Serious: Yes (Death)
  Sender: AMGEN
  Company Number: CN-AMGEN-CHNSP2024242001

PATIENT

DRUGS (5)
  1. BLINATUMOMAB [Suspect]
     Active Substance: BLINATUMOMAB
     Indication: B-cell type acute leukaemia
     Dosage: 5 MICROGRAM/M2 DAILY OR 9 MICROGRAM/M2 DAILY
     Route: 065
  2. BLINATUMOMAB [Suspect]
     Active Substance: BLINATUMOMAB
     Dosage: 15 MICROGRAM/SQ. METER, QD
     Route: 065
  3. DEXAMETHASONE [Concomitant]
     Active Substance: DEXAMETHASONE
     Dosage: UNK
     Route: 040
  4. LORATADINE [Concomitant]
     Active Substance: LORATADINE
     Dosage: UNK
     Route: 048
  5. IBUPROFEN [Concomitant]
     Active Substance: IBUPROFEN
     Dosage: UNK
     Route: 048

REACTIONS (1)
  - Death [Fatal]
